FAERS Safety Report 9412167 (Version 1)
Quarter: 2013Q3

REPORT INFORMATION
  Report Type: Spontaneous
  Country: US (occurrence: US)
  Receive Date: 20130722
  Receipt Date: 20130722
  Transmission Date: 20140515
  Serious: No
  Sender: FDA-Public Use
  Company Number: US-009507513-1307USA011734

PATIENT
  Sex: Male

DRUGS (1)
  1. LOTRIMIN AF [Suspect]
     Indication: FUNGAL INFECTION
     Dosage: UNK, UNKNOWN
     Route: 061

REACTIONS (2)
  - Orchitis noninfective [Not Recovered/Not Resolved]
  - Off label use [Unknown]
